FAERS Safety Report 6015539-5 (Version None)
Quarter: 2008Q4

REPORT INFORMATION
  Report Type: 
  Country: None (occurrence: None)
  Receive Date: 20081222
  Receipt Date: 20081210
  Transmission Date: 20090506
  Serious: Yes (Other)
  Sender: FDA-Public Use
  Company Number: US-PFIZER INC-2008152364

PATIENT
  Sex: Female
  Weight: 95.238 kg

DRUGS (2)
  1. GENOTROPIN [Suspect]
     Indication: HYPOPITUITARISM
     Dates: start: 19870101, end: 20081016
  2. PHENYTOIN SODIUM [Concomitant]
     Dosage: UNK

REACTIONS (2)
  - ADRENAL DISORDER [None]
  - EPILEPSY [None]
